FAERS Safety Report 18062011 (Version 1)
Quarter: 2020Q3

REPORT INFORMATION
  Report Type: Report from Study
  Country: IT (occurrence: IT)
  Receive Date: 20200723
  Receipt Date: 20200723
  Transmission Date: 20201103
  Serious: Yes (Other)
  Sender: FDA-Public Use
  Company Number: IT-ASTRAZENECA-2020SE87099

PATIENT
  Age: 22173 Day
  Sex: Female

DRUGS (6)
  1. LYNPARZA [Suspect]
     Active Substance: OLAPARIB
     Indication: FALLOPIAN TUBE CANCER
     Route: 048
  2. TOTALIP [Concomitant]
     Active Substance: ATORVASTATIN
     Dosage: 20 MG 1 TABLET IN THE EVENING,
  3. TAPAZOLE [Concomitant]
     Active Substance: METHIMAZOLE
     Dosage: 5 MG 1 TABLET EVERY OTHER DAY
  4. LYNPARZA [Suspect]
     Active Substance: OLAPARIB
     Indication: FALLOPIAN TUBE CANCER
     Route: 048
     Dates: start: 20200526
  5. ATENOLOL. [Concomitant]
     Active Substance: ATENOLOL
     Dosage: 100/25MG 1 TABLET IN THE MORNING
  6. PLATINUM [Concomitant]
     Active Substance: PLATINUM
     Dates: end: 20200415

REACTIONS (6)
  - Myelosuppression [Unknown]
  - Neutropenia [Recovering/Resolving]
  - Anaemia [Unknown]
  - Blood creatinine increased [Recovering/Resolving]
  - Thrombocytopenia [Recovering/Resolving]
  - Stomatitis [Unknown]

NARRATIVE: CASE EVENT DATE: 20200615
